FAERS Safety Report 25742631 (Version 2)
Quarter: 2025Q4

REPORT INFORMATION
  Report Type: Spontaneous
  Country: EU (occurrence: EU)
  Receive Date: 20250830
  Receipt Date: 20251002
  Transmission Date: 20260118
  Serious: Yes (Other)
  Sender: ROCHE
  Company Number: EU-ROCHE-10000369721

PATIENT
  Age: 56 Year
  Sex: Female

DRUGS (6)
  1. ROZLYTREK [Suspect]
     Active Substance: ENTRECTINIB
     Indication: Uterine leiomyosarcoma
     Route: 050
     Dates: start: 20250205, end: 20250502
  2. epirubicin + cyclophosphamide [Concomitant]
  3. epirubicin + cyclophosphamide [Concomitant]
  4. DENOSUMAB [Concomitant]
     Active Substance: DENOSUMAB
     Indication: Metastases to bone
  5. GEMCITABINE [Concomitant]
     Active Substance: GEMCITABINE
  6. DOCETAXEL [Concomitant]
     Active Substance: DOCETAXEL

REACTIONS (2)
  - Off label use [Unknown]
  - Uterine leiomyosarcoma [Not Recovered/Not Resolved]

NARRATIVE: CASE EVENT DATE: 20250502
